FAERS Safety Report 9349126 (Version 2)
Quarter: 2013Q3

REPORT INFORMATION
  Report Type: Spontaneous
  Country: US (occurrence: US)
  Receive Date: 20130614
  Receipt Date: 20130717
  Transmission Date: 20140515
  Serious: No
  Sender: FDA-Public Use
  Company Number: US-PFIZER INC-2013178916

PATIENT
  Age: 60 Year
  Sex: Male

DRUGS (5)
  1. DILANTIN [Suspect]
     Indication: CONVULSION
     Dosage: 300 MG, 1X/DAY
     Route: 048
     Dates: start: 19960905
  2. ZOVIRAX [Concomitant]
     Dosage: 400 MG, TWO TIMES DAILY
     Route: 048
  3. DIAZEPAM [Concomitant]
     Indication: MUSCLE SPASMS
     Dosage: 5 MG, AS NEEDED
  4. ADVIL [Concomitant]
     Dosage: 800 MG, AS NEEDED
     Route: 048
  5. MOTRIN [Concomitant]
     Dosage: 800 MG, AS NEEDED
     Route: 048

REACTIONS (6)
  - Drug intolerance [Unknown]
  - Drug level increased [Unknown]
  - Product quality issue [Unknown]
  - Anxiety [Recovered/Resolved]
  - Feeling jittery [Recovered/Resolved]
  - Sensory disturbance [Recovered/Resolved]
